FAERS Safety Report 11824468 (Version 1)
Quarter: 2015Q4

REPORT INFORMATION
  Report Type: Spontaneous
  Country: US (occurrence: US)
  Receive Date: 20151210
  Receipt Date: 20151210
  Transmission Date: 20160305
  Serious: No
  Sender: FDA-Public Use
  Company Number: US-BAYER-2015-485326

PATIENT
  Age: 57 Year
  Sex: Female
  Weight: 101.13 kg

DRUGS (5)
  1. FLONASE [Concomitant]
     Active Substance: FLUTICASONE PROPIONATE
  2. LATANOPROST. [Concomitant]
     Active Substance: LATANOPROST
  3. VENTOLIN RESPIRATOR [Concomitant]
  4. LISINOPRIL. [Concomitant]
     Active Substance: LISINOPRIL
  5. CLARITIN-D 24 HOUR [Suspect]
     Active Substance: LORATADINE\PSEUDOEPHEDRINE SULFATE
     Indication: SEASONAL ALLERGY
     Dosage: 1 DF, QOD
     Route: 048

REACTIONS (3)
  - Blood glucose increased [None]
  - Therapeutic response unexpected [None]
  - Drug ineffective [None]

NARRATIVE: CASE EVENT DATE: 2007
